FAERS Safety Report 9882531 (Version 1)
Quarter: 2014Q1

REPORT INFORMATION
  Report Type: Spontaneous
  Country: FR (occurrence: FR)
  Receive Date: 20140207
  Receipt Date: 20140207
  Transmission Date: 20141002
  Serious: Yes (Hospitalization)
  Sender: FDA-Public Use
  Company Number: FR-ASTRAZENECA-2014SE07170

PATIENT
  Age: 136 Month
  Sex: Male

DRUGS (9)
  1. XEROQUEL [Suspect]
     Indication: IMPULSIVE BEHAVIOUR
     Route: 048
     Dates: start: 20130720
  2. XEROQUEL [Suspect]
     Indication: IMPULSIVE BEHAVIOUR
     Route: 048
     Dates: start: 201309
  3. DEPAKINE [Concomitant]
     Indication: IMPULSIVE BEHAVIOUR
     Route: 048
     Dates: start: 20130720
  4. TEMESTA [Concomitant]
  5. RIVOTRIL [Concomitant]
  6. HYPNOVEL [Concomitant]
  7. ATARAX [Concomitant]
  8. RISPERDAL [Concomitant]
  9. FLUOXETINE [Concomitant]

REACTIONS (1)
  - Obsessive-compulsive disorder [Recovering/Resolving]
